FAERS Safety Report 7422902-4 (Version None)
Quarter: 2011Q2

REPORT INFORMATION
  Report Type: 
  Country: None (occurrence: None)
  Receive Date: 20110414
  Receipt Date: 20110414
  Transmission Date: 20111010
  Serious: Yes (Life-Threatening)
  Sender: FDA-Public Use
  Company Number: None

PATIENT
  Age: 55 Year
  Sex: Female
  Weight: 63.05 kg

DRUGS (1)
  1. CARBOPLATIN [Suspect]
     Indication: BREAST CANCER
     Dosage: 900 EVERY 3 WEEKS IV BOLUS
     Route: 040
     Dates: start: 20110111, end: 20110413

REACTIONS (7)
  - CHEST DISCOMFORT [None]
  - HEART RATE INCREASED [None]
  - ERYTHEMA [None]
  - FLUSHING [None]
  - ANXIETY [None]
  - PRURITUS [None]
  - DYSPNOEA [None]
